FAERS Safety Report 7512337-8 (Version None)
Quarter: 2011Q2

REPORT INFORMATION
  Report Type: 
  Country: None (occurrence: None)
  Receive Date: 20110531
  Receipt Date: 20110530
  Transmission Date: 20111010
  Serious: Yes (Other)
  Sender: FDA-Public Use
  Company Number: JP-PFIZER INC-2011109645

PATIENT
  Age: 76 Year
  Sex: Male

DRUGS (1)
  1. ATARAX [Suspect]
     Dosage: 10 MG, 2X/DAY
     Route: 048
     Dates: start: 20110520

REACTIONS (1)
  - DYSPNOEA [None]
